FAERS Safety Report 7261206-X (Version None)
Quarter: 2011Q1

REPORT INFORMATION
  Report Type: 
  Country: None (occurrence: None)
  Receive Date: 20110130
  Receipt Date: 20100929
  Transmission Date: 20110831
  Serious: No
  Sender: FDA-Public Use
  Company Number: US-ABBOTT-10P-163-0674311-00

PATIENT
  Age: 63 Year
  Sex: Female

DRUGS (9)
  1. HUMIRA [Suspect]
     Indication: CROHN'S DISEASE
     Dates: start: 20100801
  2. JOINT RELIEF FORMULA [Concomitant]
     Indication: PRODUCT USED FOR UNKNOWN INDICATION
  3. OMEPRAZOLE [Concomitant]
     Indication: PRODUCT USED FOR UNKNOWN INDICATION
  4. LOVAZA [Concomitant]
     Indication: PRODUCT USED FOR UNKNOWN INDICATION
  5. MERCAPTOTURINE MP6 [Concomitant]
     Indication: PRODUCT USED FOR UNKNOWN INDICATION
  6. TRAMADOL HCL [Concomitant]
     Indication: PRODUCT USED FOR UNKNOWN INDICATION
  7. OMEGA MULTI [Concomitant]
     Indication: PRODUCT USED FOR UNKNOWN INDICATION
  8. MULTI PRO BIOTIC [Concomitant]
     Indication: PRODUCT USED FOR UNKNOWN INDICATION
  9. CAL APPETITE PLUS [Concomitant]
     Indication: PRODUCT USED FOR UNKNOWN INDICATION

REACTIONS (6)
  - HEADACHE [None]
  - MUSCULOSKELETAL STIFFNESS [None]
  - DIARRHOEA [None]
  - OCULAR HYPERAEMIA [None]
  - INSOMNIA [None]
  - ABDOMINAL PAIN UPPER [None]
